FAERS Safety Report 4280187-4 (Version None)
Quarter: 2004Q1

REPORT INFORMATION
  Report Type: 
  Country: None (occurrence: None)
  Receive Date: 20040128
  Receipt Date: 20040107
  Transmission Date: 20041129
  Serious: Yes (Hospitalization)
  Sender: FDA-Public Use
  Company Number: DE-GLAXOSMITHKLINE-B0319115A

PATIENT
  Age: 70 Year
  Sex: Male
  Weight: 66.5 kg

DRUGS (2)
  1. TOPOTECAN [Suspect]
     Indication: SMALL CELL LUNG CANCER STAGE UNSPECIFIED
     Dosage: 230MG PER DAY
     Route: 042
     Dates: start: 20031202
  2. CISPLATIN [Suspect]

REACTIONS (5)
  - ABDOMINAL PAIN [None]
  - GALLBLADDER PERFORATION [None]
  - HAEMOGLOBIN DECREASED [None]
  - PERITONITIS [None]
  - WHITE BLOOD CELL COUNT INCREASED [None]
